FAERS Safety Report 8157707-2 (Version None)
Quarter: 2012Q1

REPORT INFORMATION
  Report Type: 
  Country: None (occurrence: None)
  Receive Date: 20120222
  Receipt Date: 20120215
  Transmission Date: 20120608
  Serious: Yes (Other)
  Sender: FDA-Public Use
  Company Number: JP-PFIZER INC-2012012209

PATIENT
  Age: 32 Year
  Sex: Female

DRUGS (10)
  1. MEDIPEACE [Concomitant]
     Indication: DEPRESSION
     Dosage: 1 MG ONCE OR TWICE DAILY AS NEEDED
     Route: 048
     Dates: start: 20110510, end: 20120202
  2. REMERON [Concomitant]
     Dosage: 30 MG, 1X/DAY
     Route: 048
     Dates: start: 20110817, end: 20111025
  3. FLUNITRAZEPAM [Concomitant]
     Dosage: 4 MG, 1X/DAY
     Route: 048
     Dates: start: 20111124, end: 20120105
  4. ZOLOFT [Suspect]
     Dosage: 25 MG, 2X/DAY
     Route: 048
     Dates: start: 20120111, end: 20120116
  5. ZOLOFT [Suspect]
     Dosage: 25 MG, 1X/DAY
     Route: 048
     Dates: start: 20120106, end: 20120110
  6. FLUNITRAZEPAM [Concomitant]
     Indication: INSOMNIA
     Dosage: 2 MG, 1X/DAY
     Route: 048
     Dates: start: 20111110, end: 20111123
  7. LEVOTOMIN [Concomitant]
     Indication: INSOMNIA
     Dosage: 25 MG, 1X/DAY
     Route: 048
     Dates: start: 20120111, end: 20120119
  8. REMERON [Concomitant]
     Dosage: 15 MG, 1X/DAY
     Route: 048
     Dates: start: 20111026, end: 20120105
  9. SEROQUEL [Concomitant]
     Indication: INSOMNIA
     Dosage: 50 MG, 1X/DAY
     Route: 048
     Dates: start: 20120106, end: 20120110
  10. REMERON [Concomitant]
     Indication: DEPRESSION
     Dosage: 15 MG, 1X/DAY
     Route: 048
     Dates: start: 20110722, end: 20110816

REACTIONS (2)
  - BLISTER [None]
  - DRUG ERUPTION [None]
